FAERS Safety Report 8392558-5 (Version None)
Quarter: 2012Q2

REPORT INFORMATION
  Report Type: 
  Country: None (occurrence: None)
  Receive Date: 20120529
  Receipt Date: 20120522
  Transmission Date: 20120825
  Serious: Yes (Other)
  Sender: FDA-Public Use
  Company Number: JP-MERCK-1205USA04469

PATIENT
  Age: 40 Year
  Sex: Male

DRUGS (4)
  1. ZETIA [Concomitant]
     Dosage: DAILY DOSAGE UNKNOWN
     Route: 048
  2. PROPECIA [Suspect]
     Dosage: DAILY DOSAGE UNKNOWN
     Route: 048
     Dates: start: 20070101
  3. ZOLOFT [Suspect]
     Dosage: DAILY DOSAGE UNKNOWN
     Route: 048
  4. LIPIDIL [Concomitant]
     Route: 048

REACTIONS (3)
  - LIVER FUNCTION TEST ABNORMAL [None]
  - OEDEMA PERIPHERAL [None]
  - FACE OEDEMA [None]
